FAERS Safety Report 10982719 (Version 1)
Quarter: 2015Q2

REPORT INFORMATION
  Report Type: Spontaneous
  Country: US (occurrence: None)
  Receive Date: 20150402
  Receipt Date: 20150402
  Transmission Date: 20150821
  Serious: Yes (Hospitalization)
  Sender: FDA-Public Use
  Company Number: None

PATIENT
  Age: 66 Year
  Sex: Male
  Weight: 57.3 kg

DRUGS (1)
  1. INFLIXIMAB [Suspect]
     Active Substance: INFLIXIMAB
     Indication: IRRITABLE BOWEL SYNDROME
     Route: 042
     Dates: start: 20150213, end: 20150213

REACTIONS (2)
  - Pleural effusion [None]
  - Alveolitis allergic [None]

NARRATIVE: CASE EVENT DATE: 20150316
